FAERS Safety Report 20940081 (Version 1)
Quarter: 2022Q2

REPORT INFORMATION
  Report Type: Spontaneous
  Country: PL (occurrence: PL)
  Receive Date: 20220609
  Receipt Date: 20220609
  Transmission Date: 20220721
  Serious: Yes (Other)
  Sender: FDA-Public Use
  Company Number: PL-AMGEN-POLSP2022091070

PATIENT
  Age: 65 Year
  Sex: Female

DRUGS (6)
  1. IRINOTECAN HYDROCHLORIDE [Suspect]
     Active Substance: IRINOTECAN HYDROCHLORIDE
     Indication: Colorectal cancer metastatic
     Dosage: 180 MILLIGRAM/SQ. METER, EVERY 2 WEEKS
     Route: 065
     Dates: start: 202012, end: 202202
  2. LEUCOVORIN CALCIUM [Suspect]
     Active Substance: LEUCOVORIN CALCIUM
     Indication: Colorectal cancer metastatic
     Dosage: 200 MILLIGRAM/SQ. METER, EVERY 2 WEEKS
     Route: 065
     Dates: start: 202012
  3. FLUOROURACIL [Suspect]
     Active Substance: FLUOROURACIL
     Indication: Colorectal cancer metastatic
     Dosage: 400 MILLIGRAM/SQ. METER, EVERY 2 WEEKS
     Route: 040
     Dates: start: 202012
  4. FLUOROURACIL [Suspect]
     Active Substance: FLUOROURACIL
     Dosage: 600 MILLIGRAM/SQ. METER 1,2 DF EVERY 14 DAYS
     Route: 042
     Dates: start: 202012
  5. VECTIBIX [Suspect]
     Active Substance: PANITUMUMAB
     Indication: Colorectal cancer metastatic
     Dosage: 6 MILLIGRAM/KILOGRAM, EVERY 3 WEEKS
     Route: 065
     Dates: start: 202202
  6. VECTIBIX [Suspect]
     Active Substance: PANITUMUMAB
     Dosage: 6 MILLIGRAM/KILOGRAM, EVERY 2 WEEKS
     Route: 065
     Dates: start: 202012

REACTIONS (3)
  - Neutropenia [Recovered/Resolved]
  - Skin disorder [Recovered/Resolved]
  - Diarrhoea [Recovered/Resolved]
